FAERS Safety Report 4665930-4 (Version None)
Quarter: 2005Q2

REPORT INFORMATION
  Report Type: 
  Country: None (occurrence: None)
  Receive Date: 20050517
  Receipt Date: 20050517
  Transmission Date: 20051028
  Serious: Yes (Other)
  Sender: FDA-Public Use
  Company Number: None

PATIENT
  Age: 40 Year
  Sex: Male
  Weight: 78.9259 kg

DRUGS (1)
  1. ZICAM (OTC NOSE SPRAY) [Suspect]
     Indication: UPPER RESPIRATORY TRACT INFECTION
     Dosage: NOSE SPRAY PRN
     Dates: start: 20050301

REACTIONS (2)
  - AGEUSIA [None]
  - ANOSMIA [None]
